FAERS Safety Report 4348271-4 (Version None)
Quarter: 2004Q2

REPORT INFORMATION
  Report Type: 
  Country: None (occurrence: None)
  Receive Date: 20040422
  Receipt Date: 20040413
  Transmission Date: 20050107
  Serious: Yes (Hospitalization)
  Sender: FDA-Public Use
  Company Number: 2004CG00711

PATIENT
  Age: 34 Year
  Sex: Female
  Weight: 50 kg

DRUGS (16)
  1. FELODIPINE [Suspect]
     Dosage: 5 MG DAILY PO
     Route: 048
     Dates: start: 20040306, end: 20040318
  2. OMEPRAZOLE [Suspect]
     Dosage: 20 MG DAILY PO
     Route: 048
     Dates: start: 20040205, end: 20040318
  3. CLINDAMYCIN HCL [Suspect]
     Dosage: 400 MG TID PO
     Route: 048
     Dates: start: 20040301, end: 20040318
  4. TRACLEER [Suspect]
     Dosage: 62.5 MG BID PO
     Route: 048
     Dates: start: 20040306, end: 20040317
  5. PAROXETINE HCL [Suspect]
     Dosage: 20 MG DAILY PO
     Route: 048
     Dates: start: 20040205, end: 20040318
  6. ILOMEDINE [Suspect]
     Dates: start: 20040205, end: 20040308
  7. CIPROFLOXACIN [Suspect]
  8. MORPHINE [Suspect]
  9. ACTISKENAN [Suspect]
  10. KARDEGIC /FRA/ [Suspect]
  11. MICROVAL [Suspect]
  12. FORLAX [Suspect]
  13. ZOLPIDEM TARTRATE [Suspect]
  14. PYOSTACINE [Concomitant]
  15. TRANXENE [Suspect]
  16. NICORETTE [Suspect]

REACTIONS (3)
  - DYSPNOEA [None]
  - OEDEMA [None]
  - POLYSEROSITIS [None]
